FAERS Safety Report 7543993-6 (Version None)
Quarter: 2011Q2

REPORT INFORMATION
  Report Type: 
  Country: None (occurrence: None)
  Receive Date: 20110613
  Receipt Date: 20041125
  Transmission Date: 20111010
  Serious: Yes (Hospitalization)
  Sender: FDA-Public Use
  Company Number: PHHO2004CA16883

PATIENT
  Sex: Female

DRUGS (5)
  1. SANDOSTATIN LAR [Suspect]
     Dates: start: 20041005
  2. SANDOSTATIN LAR [Suspect]
     Dosage: 50 UG, BID
     Dates: start: 20020201, end: 20030201
  3. SANDOSTATIN LAR [Suspect]
     Dates: end: 20020201
  4. SANDOSTATIN LAR [Suspect]
     Dosage: 50 UG, TID
     Dates: start: 20030201, end: 20030401
  5. SANDOSTATIN LAR [Suspect]
     Dosage: 200 UG, TID
     Dates: start: 20030401

REACTIONS (8)
  - EOSINOPHILIC CELLULITIS [None]
  - SCAR [None]
  - WOUND SECRETION [None]
  - BLINDNESS [None]
  - PYODERMA GANGRENOSUM [None]
  - BURNING SENSATION [None]
  - ACNE [None]
  - SWELLING [None]
